FAERS Safety Report 9703373 (Version 8)
Quarter: 2014Q2

REPORT INFORMATION
  Report Type: Report from Study
  Country: CA (occurrence: CA)
  Receive Date: 20131122
  Receipt Date: 20140607
  Transmission Date: 20141212
  Serious: Yes (Death, Hospitalization, Other)
  Sender: FDA-Public Use
  Company Number: PHHY2013CA132719

PATIENT
  Age: 35 Year
  Sex: Male

DRUGS (1)
  1. SANDOSTATIN LAR [Suspect]
     Indication: NEUROENDOCRINE TUMOUR
     Dosage: 30 MG, EVERY 4 WEEKS
     Route: 030
     Dates: start: 20131021

REACTIONS (9)
  - Death [Fatal]
  - Abdominal abscess [Unknown]
  - Abdominal pain upper [Unknown]
  - Constipation [Unknown]
  - Crohn^s disease [Unknown]
  - Spinal cord injury [Unknown]
  - Hypotonia [Unknown]
  - Local swelling [Unknown]
  - Heart rate increased [Unknown]
